FAERS Safety Report 25488001 (Version 1)
Quarter: 2025Q2

REPORT INFORMATION
  Report Type: Spontaneous
  Country: US (occurrence: US)
  Receive Date: 20250627
  Receipt Date: 20250627
  Transmission Date: 20250716
  Serious: Yes (Death, Life-Threatening, Hospitalization, Other)
  Sender: LABORATOIRES SERB
  Company Number: US-SERB S.A.S.-2179493

PATIENT
  Age: 21 Year
  Sex: Female

DRUGS (1)
  1. CYANOKIT [Suspect]
     Active Substance: HYDROXOCOBALAMIN
     Indication: Overdose

REACTIONS (4)
  - Pulseless electrical activity [Fatal]
  - Product use in unapproved indication [Unknown]
  - Vasoplegia syndrome [Unknown]
  - Acidosis [Unknown]
